FAERS Safety Report 17892307 (Version 1)
Quarter: 2020Q2

REPORT INFORMATION
  Report Type: Spontaneous
  Country: US (occurrence: US)
  Receive Date: 20200613
  Receipt Date: 20200613
  Transmission Date: 20200714
  Serious: Yes (Life-Threatening, Hospitalization, Other)
  Sender: FDA-Public Use
  Company Number: US-AUROBINDO-AUR-APL-2020-028529

PATIENT
  Age: 2 Year
  Sex: Male

DRUGS (3)
  1. ISOPROTERENOL. [Concomitant]
     Active Substance: ISOPROTERENOL
     Indication: BRADYARRHYTHMIA
     Route: 065
  2. LEVETIRACETAM. [Suspect]
     Active Substance: LEVETIRACETAM
     Indication: SEIZURE
     Dosage: 60 MILLIGRAM/KILOGRAM
     Route: 065
  3. LORAZEPAM. [Suspect]
     Active Substance: LORAZEPAM
     Indication: SEIZURE
     Route: 065

REACTIONS (1)
  - Drug ineffective [Recovered/Resolved]
